FAERS Safety Report 5406133-5 (Version None)
Quarter: 2007Q3

REPORT INFORMATION
  Report Type: 
  Country: None (occurrence: None)
  Receive Date: 20070802
  Receipt Date: 20070724
  Transmission Date: 20080115
  Serious: Yes (Other)
  Sender: FDA-Public Use
  Company Number: 2007-03167

PATIENT
  Age: 67 Year
  Sex: Female
  Weight: 55.3 kg

DRUGS (4)
  1. OXYTROL [Suspect]
     Indication: HYPERTONIC BLADDER
     Dosage: 1 PATCH, 2/WEEK, TRANSDERMAL
     Route: 062
     Dates: start: 20070617, end: 20070620
  2. PREMARIN [Concomitant]
  3. IMOVANE (ZOPICLONE) [Concomitant]
  4. NASONEX [Concomitant]

REACTIONS (3)
  - FALL [None]
  - GLOBAL AMNESIA [None]
  - LUMBAR VERTEBRAL FRACTURE [None]
